FAERS Safety Report 8108498-2 (Version None)
Quarter: 2012Q1

REPORT INFORMATION
  Report Type: 
  Country: None (occurrence: None)
  Receive Date: 20120202
  Receipt Date: 20120127
  Transmission Date: 20120608
  Serious: Yes (Death, Disabling)
  Sender: FDA-Public Use
  Company Number: JP-PFIZER INC-2011214341

PATIENT
  Age: 85 Year
  Sex: Male
  Weight: 50 kg

DRUGS (16)
  1. ELNEOPA NO.2 [Concomitant]
     Dosage: 200 ML, UNK
  2. BISOLVON [Concomitant]
     Dosage: 4 MG, UNK
  3. LASIX [Concomitant]
     Dosage: 10 MG, UNK
  4. HABEKACIN [Suspect]
     Indication: PNEUMONIA STAPHYLOCOCCAL
     Dosage: 200 MG, 1X/DAY
     Route: 041
     Dates: start: 20110824
  5. FAMOTIDINE [Concomitant]
     Dosage: 20 MG, UNK
  6. LEVOFLOXACIN [Suspect]
     Indication: INFECTION
     Dosage: 500 MG, 1X/DAY
     Route: 041
     Dates: start: 20110816, end: 20110831
  7. KIDMIN [Concomitant]
     Dosage: UNK
  8. SOLDEM 1 [Concomitant]
     Dosage: 500 ML, UNK
  9. MIDAZOLAM HCL [Concomitant]
     Dosage: 10 MG, UNK
  10. PROPOFOL [Concomitant]
     Dosage: UNK
  11. HICALIQ [Concomitant]
     Dosage: UNK
  12. ZYVOX [Suspect]
     Indication: PNEUMONIA STAPHYLOCOCCAL
     Dosage: 600 MG, 2X/DAY
     Route: 041
     Dates: start: 20110819, end: 20110824
  13. VANCOMYCIN HYDROCHLORIDE [Suspect]
     Indication: PNEUMONIA STAPHYLOCOCCAL
     Dosage: 0.5 G, 3X/DAY
     Route: 041
     Dates: start: 20110812, end: 20110818
  14. IRON SUCROSE [Concomitant]
     Dosage: 40 MG, UNK
     Route: 042
  15. LACTEC [Concomitant]
     Dosage: 500 ML, UNK
  16. VITAJECT [Concomitant]
     Dosage: UNK

REACTIONS (2)
  - DISSEMINATED INTRAVASCULAR COAGULATION [None]
  - PLATELET COUNT DECREASED [None]
